FAERS Safety Report 9274766 (Version 2)
Quarter: 2013Q2

REPORT INFORMATION
  Report Type: Spontaneous
  Country: US (occurrence: None)
  Receive Date: 20130429
  Receipt Date: 20130515
  Transmission Date: 20140414
  Serious: Yes (Other)
  Sender: FDA-Public Use
  Company Number: USA/USA/13/0029168

PATIENT
  Age: 21 Year
  Sex: Male

DRUGS (2)
  1. REVATIO [Suspect]
     Indication: PRODUCT USED FOR UNKNOWN INDICATION
     Route: 048
     Dates: start: 20101111
  2. WARFARIN (WARFARIN) [Concomitant]

REACTIONS (3)
  - Non-cardiogenic pulmonary oedema [None]
  - Pleural effusion [None]
  - Oxygen saturation decreased [None]
